FAERS Safety Report 20937631 (Version 1)
Quarter: 2022Q2

REPORT INFORMATION
  Report Type: Spontaneous
  Country: US (occurrence: US)
  Receive Date: 20220609
  Receipt Date: 20220609
  Transmission Date: 20220720
  Serious: No
  Sender: FDA-Public Use
  Company Number: US-ORGANON-O2206USA000476

PATIENT
  Age: 20 Year
  Sex: Female
  Weight: 81.633 kg

DRUGS (1)
  1. NEXPLANON [Suspect]
     Active Substance: ETONOGESTREL
     Indication: Contraception
     Dosage: 68 MG ROD , LEFT ARM
     Route: 059
     Dates: start: 20211208, end: 20220603

REACTIONS (2)
  - Device breakage [Recovered/Resolved]
  - Implant site pain [Recovering/Resolving]

NARRATIVE: CASE EVENT DATE: 20220501
